FAERS Safety Report 15769509 (Version 1)
Quarter: 2018Q4

REPORT INFORMATION
  Report Type: Spontaneous
  Country: GB (occurrence: GB)
  Receive Date: 20181228
  Receipt Date: 20181228
  Transmission Date: 20190205
  Serious: Yes (Life-Threatening, Hospitalization, Disabling, Other)
  Sender: FDA-Public Use
  Company Number: GB-AUROBINDO-AUR-APL-2018-062849

PATIENT
  Age: 76 Year
  Sex: Female

DRUGS (2)
  1. CLOPIDOGREL [Suspect]
     Active Substance: CLOPIDOGREL BISULFATE
     Indication: CEREBROVASCULAR ACCIDENT PROPHYLAXIS
     Dosage: 75 MILLIGRAM, DAILY
     Route: 048
     Dates: end: 20181128
  2. ACETYLSALICYLIC ACID [Suspect]
     Active Substance: ASPIRIN
     Indication: CEREBROVASCULAR ACCIDENT PROPHYLAXIS
     Dosage: 75 MILLIGRAM, DAILY
     Route: 048
     Dates: start: 20110412, end: 20181128

REACTIONS (1)
  - Haemorrhage intracranial [Not Recovered/Not Resolved]

NARRATIVE: CASE EVENT DATE: 20181127
